FAERS Safety Report 19059480 (Version 1)
Quarter: 2021Q1

REPORT INFORMATION
  Report Type: Spontaneous
  Country: CA (occurrence: CA)
  Receive Date: 20210325
  Receipt Date: 20210325
  Transmission Date: 20210420
  Serious: Yes (Life-Threatening, Hospitalization)
  Sender: FDA-Public Use
  Company Number: CA-ELI_LILLY_AND_COMPANY-CA202103009905

PATIENT
  Age: 64 Year
  Sex: Female
  Weight: 41 kg

DRUGS (2)
  1. PACLITAXEL. [Suspect]
     Active Substance: PACLITAXEL
     Indication: GASTRIC CANCER
     Dosage: 110 MG, WEEKLY (1/W)
     Route: 042
  2. CYRAMZA [Suspect]
     Active Substance: RAMUCIRUMAB
     Indication: PRODUCT USED FOR UNKNOWN INDICATION
     Dosage: 328 MG, 2/M
     Route: 042

REACTIONS (4)
  - Hyperthermia [Unknown]
  - Vomiting [Unknown]
  - Chills [Unknown]
  - Pneumonia [Unknown]
